FAERS Safety Report 7479344-5 (Version None)
Quarter: 2011Q2

REPORT INFORMATION
  Report Type: 
  Country: None (occurrence: None)
  Receive Date: 20110513
  Receipt Date: 20110422
  Transmission Date: 20111010
  Serious: No
  Sender: FDA-Public Use
  Company Number: US-B.I. PHARMACEUTICALS,INC./RIDGEFIELD-2011-BP-11643BP

PATIENT
  Age: 83 Year
  Sex: Female

DRUGS (16)
  1. TOPROL-XL [Concomitant]
  2. LOSARTAN POTASSIUM [Concomitant]
  3. POTASSIUM [Concomitant]
  4. HYDROCHLOROT [Concomitant]
  5. TRICOR [Concomitant]
  6. CATAPRES [Concomitant]
  7. PRESERVISION WITH LUTIN [Concomitant]
  8. CLONIDINE [Suspect]
     Indication: HYPERTENSION
     Dosage: 2 MG
     Route: 048
  9. CADUET [Concomitant]
  10. AMIODARONE HCL [Concomitant]
  11. WARFARIN SODIUM [Concomitant]
  12. VITAMIN D [Concomitant]
  13. CABERCOLINE [Concomitant]
  14. FERROUS SULFATE TAB [Concomitant]
  15. RAMIPRIL [Concomitant]
  16. CENTRUM SILVER [Concomitant]

REACTIONS (2)
  - UPPER RESPIRATORY TRACT INFECTION [None]
  - ABDOMINAL DISCOMFORT [None]
